FAERS Safety Report 14608008 (Version 1)
Quarter: 2018Q1

REPORT INFORMATION
  Report Type: Spontaneous
  Country: ES (occurrence: ES)
  Receive Date: 20180307
  Receipt Date: 20180307
  Transmission Date: 20180509
  Serious: Yes (Life-Threatening, Hospitalization, Other)
  Sender: FDA-Public Use
  Company Number: ES-GLAXOSMITHKLINE-ES2018GSK034885

PATIENT
  Age: 67 Year
  Sex: Female

DRUGS (7)
  1. RISPERIDONE. [Suspect]
     Active Substance: RISPERIDONE
     Indication: MAJOR DEPRESSION
     Dosage: 6 MG, QD
     Route: 048
     Dates: start: 201605, end: 20170310
  2. LITHIUM. [Concomitant]
     Active Substance: LITHIUM
     Indication: PRODUCT USED FOR UNKNOWN INDICATION
     Dosage: 400 MG, QD
     Route: 048
     Dates: start: 201611
  3. BROMOCRIPTINE [Suspect]
     Active Substance: BROMOCRIPTINE
     Indication: PRODUCT USED FOR UNKNOWN INDICATION
  4. LORAZEPAM. [Suspect]
     Active Substance: LORAZEPAM
     Indication: PRODUCT USED FOR UNKNOWN INDICATION
     Dosage: 6 MG, QD
  5. CLOMIPRAMINE [Concomitant]
     Active Substance: CLOMIPRAMINE
     Indication: PRODUCT USED FOR UNKNOWN INDICATION
     Dosage: 225 MG, QD
     Route: 048
     Dates: start: 201605
  6. QUETIAPINE. [Suspect]
     Active Substance: QUETIAPINE
     Indication: MAJOR DEPRESSION
     Dosage: 100 MG, QD
     Route: 048
     Dates: start: 201611
  7. BUPROPION. [Suspect]
     Active Substance: BUPROPION
     Indication: NEUROLEPTIC MALIGNANT SYNDROME
     Dosage: 300 MG, QD

REACTIONS (22)
  - Parkinsonian gait [Recovering/Resolving]
  - Musculoskeletal stiffness [Recovering/Resolving]
  - Stupor [Recovering/Resolving]
  - Catatonia [Recovering/Resolving]
  - Pyrexia [Recovering/Resolving]
  - Leukocytosis [Recovering/Resolving]
  - Mutism [Recovering/Resolving]
  - Supraventricular tachycardia [Recovering/Resolving]
  - Negativism [Recovering/Resolving]
  - Therapeutic response unexpected [Unknown]
  - Bradykinesia [Recovering/Resolving]
  - Hyperhidrosis [Recovering/Resolving]
  - Hypertension [Recovering/Resolving]
  - Poverty of speech [Recovering/Resolving]
  - Hypotension [Recovering/Resolving]
  - Amnesia [Recovering/Resolving]
  - Tachycardia [Recovering/Resolving]
  - Stereotypy [Recovering/Resolving]
  - Somnolence [Recovering/Resolving]
  - Confusional state [Recovering/Resolving]
  - Neuroleptic malignant syndrome [Recovering/Resolving]
  - Disorientation [Recovering/Resolving]

NARRATIVE: CASE EVENT DATE: 201703
